FAERS Safety Report 4730604-8 (Version None)
Quarter: 2005Q3

REPORT INFORMATION
  Report Type: 
  Country: None (occurrence: None)
  Receive Date: 20050801
  Receipt Date: 20050729
  Transmission Date: 20060218
  Serious: Yes (Other)
  Sender: FDA-Public Use
  Company Number: JP-SANOFI-SYNTHELABO-F01200501358

PATIENT
  Sex: Female
  Weight: 62 kg

DRUGS (4)
  1. OXALIPLATIN [Suspect]
     Indication: COLON CANCER
     Route: 042
     Dates: start: 20050613, end: 20050613
  2. FLUOROURACIL [Suspect]
     Dosage: 400 MG/M2 IV BOLUS AND 600 MG/M2 IV 22 HOURS CONTINUOUS INFUSION, Q2W
     Route: 040
     Dates: start: 20050613, end: 20050614
  3. FLUOROURACIL [Suspect]
     Dosage: 400 MG/M2 IV BOLUS AND 600 MG/M2 IV 22 HOURS CONTINUOUS INFUSION, Q2W
     Route: 042
     Dates: start: 20050613, end: 20050614
  4. CALCIUM LEVOFOLINATE [Suspect]
     Route: 042
     Dates: start: 20050613, end: 20050614

REACTIONS (2)
  - PERFORMANCE STATUS DECREASED [None]
  - WHITE BLOOD CELL COUNT DECREASED [None]
